FAERS Safety Report 24316400 (Version 4)
Quarter: 2024Q4

REPORT INFORMATION
  Report Type: Spontaneous
  Country: US (occurrence: US)
  Receive Date: 20240913
  Receipt Date: 20241104
  Transmission Date: 20250115
  Serious: No
  Sender: PFIZER
  Company Number: US-PFIZER INC-202400252997

PATIENT
  Age: 23 Year
  Sex: Male
  Weight: 90.72 kg

DRUGS (1)
  1. GENOTROPIN [Suspect]
     Active Substance: SOMATROPIN
     Dosage: 0.2 MG, ONCE

REACTIONS (3)
  - Drug dose omission by device [Unknown]
  - Incorrect dose administered by device [Unknown]
  - Device delivery system issue [Unknown]
